FAERS Safety Report 12164576 (Version 7)
Quarter: 2018Q4

REPORT INFORMATION
  Report Type: Spontaneous
  Country: US (occurrence: US)
  Receive Date: 20160309
  Receipt Date: 20181019
  Transmission Date: 20190204
  Serious: No
  Sender: FDA-Public Use
  Company Number: US-PFIZER INC-2016139546

PATIENT
  Age: 83 Year
  Sex: Female
  Weight: 77 kg

DRUGS (6)
  1. LYRICA [Suspect]
     Active Substance: PREGABALIN
     Indication: NEUROPATHY PERIPHERAL
     Dosage: 150 MG, 2X/DAY(IN THE MORNING AND AT THE NIGHT)
     Route: 048
  2. METOPROLOL. [Concomitant]
     Active Substance: METOPROLOL
     Indication: CARDIAC DISORDER
     Dosage: 25 MG, 2X/DAY
  3. PANTOPRAZOLE [Concomitant]
     Active Substance: PANTOPRAZOLE
     Dosage: UNK, 1X/DAY
  4. EFFEXOR [Concomitant]
     Active Substance: VENLAFAXINE HYDROCHLORIDE
     Dosage: 75 MG, 1X/DAY
  5. FUROSEMIDE. [Concomitant]
     Active Substance: FUROSEMIDE
     Indication: DIURETIC THERAPY
     Dosage: 80 MG, 1X/DAY
     Dates: start: 2015
  6. LYRICA [Suspect]
     Active Substance: PREGABALIN
     Indication: PAIN
     Dosage: 150 MG, DAILY
     Route: 048

REACTIONS (8)
  - Withdrawal syndrome [Unknown]
  - Pain [Unknown]
  - Panic attack [Unknown]
  - Malaise [Unknown]
  - Cystitis [Unknown]
  - Prescribed underdose [Unknown]
  - Drug ineffective [Unknown]
  - Feeling abnormal [Unknown]
